FAERS Safety Report 5545253-1 (Version None)
Quarter: 2007Q4

REPORT INFORMATION
  Report Type: 
  Country: None (occurrence: None)
  Receive Date: 20071123
  Receipt Date: 20070709
  Transmission Date: 20080405
  Serious: Yes (Hospitalization, Other)
  Sender: FDA-Public Use
  Company Number: 38847

PATIENT
  Age: 53 Year
  Sex: Female

DRUGS (1)
  1. LEUCOVORIN CALCIUM [Suspect]
     Indication: COLORECTAL CANCER METASTATIC
     Dosage: 400MG M2 14 DAYS
     Dates: start: 20070212, end: 20070611

REACTIONS (1)
  - VOMITING [None]
